FAERS Safety Report 8122508-8 (Version None)
Quarter: 2012Q1

REPORT INFORMATION
  Report Type: 
  Country: None (occurrence: None)
  Receive Date: 20120207
  Receipt Date: 20120207
  Transmission Date: 20120608
  Serious: Yes (Other)
  Sender: FDA-Public Use
  Company Number: None

PATIENT
  Age: 43 Year
  Sex: Female
  Weight: 70.9 kg

DRUGS (4)
  1. LAMICTAL [Suspect]
     Indication: BIPOLAR DISORDER
     Dosage: 250 MG QHS PO
     Route: 048
     Dates: start: 20110501
  2. TRAZODONE HCL [Concomitant]
  3. SEROQUEL [Concomitant]
  4. WELLBUTRIN SR [Concomitant]

REACTIONS (4)
  - CONJUNCTIVAL SCAR [None]
  - CORNEAL SCAR [None]
  - VISUAL IMPAIRMENT [None]
  - ADENOVIRAL CONJUNCTIVITIS [None]
